FAERS Safety Report 9100565 (Version 3)
Quarter: 2013Q1

REPORT INFORMATION
  Report Type: Spontaneous
  Country: JP (occurrence: JP)
  Receive Date: 20130215
  Receipt Date: 20130304
  Transmission Date: 20140127
  Serious: Yes (Hospitalization)
  Sender: FDA-Public Use
  Company Number: JP-ASTRAZENECA-2013SE09275

PATIENT
  Age: 28139 Day
  Sex: Female

DRUGS (8)
  1. NEXIUM [Suspect]
     Indication: GASTRIC ULCER
     Route: 048
     Dates: start: 20130122, end: 20130131
  2. LIPITOR [Concomitant]
     Indication: DYSLIPIDAEMIA
     Route: 048
     Dates: start: 2008, end: 20130131
  3. METGLUCO [Concomitant]
     Indication: DIABETES MELLITUS
     Route: 048
     Dates: start: 2008, end: 20130131
  4. ALDACTONE A [Concomitant]
     Indication: CARDIAC FAILURE
     Route: 048
     Dates: start: 2008
  5. LASIX [Concomitant]
     Indication: CARDIAC FAILURE
     Route: 048
     Dates: start: 2008
  6. AMARYL [Concomitant]
     Indication: DIABETES MELLITUS
     Route: 048
     Dates: start: 2008
  7. THYRADIN S [Concomitant]
     Indication: HYPOTHYROIDISM
     Route: 048
     Dates: start: 2008
  8. KINEDAK [Concomitant]
     Indication: DIABETES MELLITUS
     Route: 048
     Dates: start: 2008

REACTIONS (2)
  - Rhabdomyolysis [Recovered/Resolved]
  - Oedema peripheral [Unknown]
